FAERS Safety Report 20114309 (Version 1)
Quarter: 2021Q4

REPORT INFORMATION
  Report Type: Spontaneous
  Country: CN (occurrence: CN)
  Receive Date: 20211125
  Receipt Date: 20211125
  Transmission Date: 20220304
  Serious: Yes (Other)
  Sender: FDA-Public Use
  Company Number: CN-ELI_LILLY_AND_COMPANY-CN202111006519

PATIENT
  Age: 67 Year
  Sex: Male
  Weight: 61 kg

DRUGS (8)
  1. GEMZAR [Suspect]
     Active Substance: GEMCITABINE HYDROCHLORIDE
     Indication: Symptomatic treatment
     Dosage: 400 MG, SINGLE
     Route: 041
     Dates: start: 20211021, end: 20211021
  2. GEMZAR [Suspect]
     Active Substance: GEMCITABINE HYDROCHLORIDE
     Dosage: 1 G, SINGLE
     Route: 041
     Dates: start: 20211021, end: 20211021
  3. ELOXATIN [Suspect]
     Active Substance: OXALIPLATIN
     Indication: Symptomatic treatment
     Dosage: 150 MG, UNKNOWN
     Route: 041
     Dates: start: 20211022, end: 20211022
  4. DEXAMETHASONE [Concomitant]
     Active Substance: DEXAMETHASONE
     Indication: Chemotherapy side effect prophylaxis
  5. DEXAMETHASONE [Concomitant]
     Active Substance: DEXAMETHASONE
     Indication: Chills
  6. DEXAMETHASONE [Concomitant]
     Active Substance: DEXAMETHASONE
     Indication: Pyrexia
  7. TROPISETRON [Concomitant]
     Active Substance: TROPISETRON
     Indication: Vomiting
  8. DEXTROSE [Concomitant]
     Active Substance: DEXTROSE
     Indication: Symptomatic treatment
     Dosage: 250 ML
     Route: 041

REACTIONS (12)
  - Ascites [Recovering/Resolving]
  - Anaphylactic shock [Recovering/Resolving]
  - Thrombocytopenia [Recovering/Resolving]
  - Hypoproteinaemia [Recovering/Resolving]
  - Chest discomfort [Recovering/Resolving]
  - General physical health deterioration [Recovering/Resolving]
  - Abdominal discomfort [Recovering/Resolving]
  - Abdominal distension [Recovering/Resolving]
  - Renal impairment [Recovering/Resolving]
  - Chills [Recovering/Resolving]
  - Pyrexia [Recovering/Resolving]
  - Blood pressure decreased [Recovering/Resolving]

NARRATIVE: CASE EVENT DATE: 20211021
